FAERS Safety Report 9107766 (Version 2)
Quarter: 2013Q2

REPORT INFORMATION
  Report Type: Spontaneous
  Country: US (occurrence: US)
  Receive Date: 20130221
  Receipt Date: 20130405
  Transmission Date: 20140414
  Serious: No
  Sender: FDA-Public Use
  Company Number: US-PFIZER INC-2013062657

PATIENT
  Age: 49 Year
  Sex: Female
  Weight: 56.69 kg

DRUGS (2)
  1. INDERAL LA [Suspect]
     Indication: MIGRAINE
     Dosage: 60 MG, ALTERNATE DAY
     Route: 048
     Dates: start: 2009, end: 201208
  2. INDERAL LA [Suspect]
     Dosage: 60 MG, ALTERNATE DAY
     Route: 048
     Dates: start: 201208, end: 20130122

REACTIONS (7)
  - Feeling abnormal [Unknown]
  - Dizziness [Not Recovered/Not Resolved]
  - Tinnitus [Unknown]
  - Weight increased [Unknown]
  - Muscular weakness [Unknown]
  - Temporomandibular joint syndrome [Unknown]
  - Malaise [Unknown]
